FAERS Safety Report 10181532 (Version 1)
Quarter: 2014Q2

REPORT INFORMATION
  Report Type: Spontaneous
  Country: US (occurrence: US)
  Receive Date: 20140519
  Receipt Date: 20140519
  Transmission Date: 20141212
  Serious: Yes (Hospitalization)
  Sender: FDA-Public Use
  Company Number: US-GLAXOSMITHKLINE-A1073533A

PATIENT
  Sex: Female

DRUGS (15)
  1. ADVAIR HFA [Suspect]
     Indication: ASTHMA
     Route: 065
     Dates: start: 20121227
  2. VENTOLIN [Suspect]
     Indication: ASTHMA
     Dosage: 90MCG UNKNOWN
     Route: 065
     Dates: start: 20120308
  3. MONTELUKAST SODIUM [Concomitant]
  4. CITALOPRAM HYDROBROMIDE [Concomitant]
  5. ASPIRIN [Concomitant]
  6. LISINOPRIL [Concomitant]
  7. METFORMIN HCL [Concomitant]
  8. SIMVASTATIN [Concomitant]
  9. CETIRIZINE HCL [Concomitant]
  10. AMITRIPTYLINE HCL [Concomitant]
  11. AMOXYCILLIN + POTASSIUM CLAVULANATE [Concomitant]
  12. SODIUM RABEPRAZOLE [Concomitant]
  13. CHLORPHENIRAMINE MALEATE [Concomitant]
  14. FLUTICASONE PROPIONATE [Concomitant]
  15. TRAMADOL [Concomitant]
     Indication: BREAKTHROUGH PAIN

REACTIONS (2)
  - Investigation [Unknown]
  - Asthma [Unknown]
